FAERS Safety Report 22000067 (Version 2)
Quarter: 2023Q1

REPORT INFORMATION
  Report Type: Report from Study
  Country: AR (occurrence: AR)
  Receive Date: 20230216
  Receipt Date: 20230323
  Transmission Date: 20230417
  Serious: Yes (Life-Threatening, Hospitalization)
  Sender: FDA-Public Use
  Company Number: AR-JNJFOC-20230225452

PATIENT
  Age: 46 Year
  Sex: Female
  Weight: 45 kg

DRUGS (7)
  1. DARATUMUMAB [Suspect]
     Active Substance: DARATUMUMAB
     Indication: Plasma cell myeloma
     Dosage: WITH MOST RECENT DOSE ON 18-JAN-2023
     Route: 058
     Dates: start: 20220704
  2. TECLISTAMAB [Suspect]
     Active Substance: TECLISTAMAB
     Indication: Plasma cell myeloma
     Dosage: WITH MOST RECENT DOSE ON 18-JAN-2023
     Route: 058
     Dates: start: 20220705, end: 20220707
  3. TECLISTAMAB [Suspect]
     Active Substance: TECLISTAMAB
     Dosage: WITH MOST RECENT DOSE ON 18-JAN-2023
     Route: 058
     Dates: start: 20220711
  4. FOLIC ACID [Concomitant]
     Active Substance: FOLIC ACID
     Indication: Thrombocytopenia
     Route: 048
     Dates: start: 20220705
  5. CODEINE [Concomitant]
     Active Substance: CODEINE
     Indication: Bone pain
     Route: 048
     Dates: start: 20220829
  6. ACETAMINOPHEN [Concomitant]
     Active Substance: ACETAMINOPHEN
     Indication: Bone pain
     Route: 048
     Dates: start: 20220829
  7. PEGFILGRASTIM [Concomitant]
     Active Substance: PEGFILGRASTIM
     Indication: Neutropenia
     Route: 058
     Dates: start: 20220829

REACTIONS (1)
  - Pneumonia [Unknown]

NARRATIVE: CASE EVENT DATE: 20230208
